FAERS Safety Report 16005823 (Version 1)
Quarter: 2019Q1

REPORT INFORMATION
  Report Type: Report from Study
  Country: GB (occurrence: GB)
  Receive Date: 20190226
  Receipt Date: 20190226
  Transmission Date: 20190418
  Serious: Yes (Hospitalization)
  Sender: FDA-Public Use
  Company Number: GB-BRISTOL-MYERS SQUIBB COMPANY-BMS-2019-017368

PATIENT
  Age: 88 Year
  Sex: Female
  Weight: 65.3 kg

DRUGS (27)
  1. DOXAZOSIN [Concomitant]
     Active Substance: DOXAZOSIN\DOXAZOSIN MESYLATE
     Indication: HYPERTENSION
     Dosage: 2 MG, QD
     Route: 048
     Dates: start: 20150615, end: 20190122
  2. ISOSORBIDE                         /07346401/ [Concomitant]
     Active Substance: ISOSORBIDE
     Indication: MYOCARDIAL ISCHAEMIA
     Dosage: 10 MG, BID
     Route: 048
     Dates: start: 20180301, end: 20190122
  3. LANSOPRAZOLE. [Concomitant]
     Active Substance: LANSOPRAZOLE
     Indication: PROPHYLAXIS AGAINST GASTROINTESTINAL ULCER
     Dosage: 30 MG, QD
     Route: 048
     Dates: start: 20180813, end: 20190122
  4. NIVOLUMAB [Suspect]
     Active Substance: NIVOLUMAB
     Indication: NON-SMALL CELL LUNG CANCER
     Dosage: 240 MG, UNK
     Route: 065
     Dates: start: 20180919, end: 20180919
  5. AMLODIPINE [Concomitant]
     Active Substance: AMLODIPINE BESYLATE
     Indication: HYPERTENSION
     Dosage: 10 MG, QD
     Route: 048
     Dates: start: 20130615, end: 20190122
  6. PROSHIELD PLUS [Concomitant]
     Indication: PRODUCT USED FOR UNKNOWN INDICATION
     Dosage: 1 DF, TID
     Route: 061
     Dates: start: 20190106, end: 20190122
  7. MYCOPHENOLATE MOFETIL. [Concomitant]
     Active Substance: MYCOPHENOLATE MOFETIL
     Indication: COLITIS
     Dosage: 1 G, BID
     Route: 048
     Dates: start: 20190203
  8. METHYLPREDNISOLONE. [Concomitant]
     Active Substance: METHYLPREDNISOLONE
     Indication: PRODUCT USED FOR UNKNOWN INDICATION
     Dosage: 65 MG, QD
     Route: 042
     Dates: start: 20190131, end: 20190202
  9. INFLIXIMAB [Concomitant]
     Active Substance: INFLIXIMAB
     Indication: PRODUCT USED FOR UNKNOWN INDICATION
     Dosage: 340 MG, QD
     Route: 042
     Dates: start: 20190125, end: 20190125
  10. PREDNISOLONE. [Concomitant]
     Active Substance: PREDNISOLONE
     Indication: PRODUCT USED FOR UNKNOWN INDICATION
     Dosage: 80 MG, QD
     Route: 048
     Dates: start: 20190203, end: 20190210
  11. BISOPROLOL [Concomitant]
     Active Substance: BISOPROLOL
     Indication: HYPERTENSION
     Dosage: 1.25 MG, QD
     Route: 048
     Dates: start: 20090615, end: 20190122
  12. PARACETAMOL [Concomitant]
     Active Substance: ACETAMINOPHEN
     Indication: ARTHRALGIA
     Dosage: 1 G, PRN
     Route: 048
     Dates: start: 20180811, end: 20190122
  13. MESALAZINE [Concomitant]
     Active Substance: MESALAMINE
     Indication: COLITIS
     Dosage: 2.4 G, BID
     Route: 048
     Dates: start: 20181128, end: 20190122
  14. ASPIRIN                            /00002701/ [Concomitant]
     Active Substance: ASPIRIN
     Indication: MYOCARDIAL ISCHAEMIA
     Dosage: 75 MG, QD
     Route: 048
     Dates: start: 20090615, end: 20190122
  15. EZETIMIBE. [Concomitant]
     Active Substance: EZETIMIBE
     Indication: HYPERCHOLESTEROLAEMIA
     Dosage: 10 MG, QD
     Route: 048
     Dates: start: 20090615, end: 20190122
  16. TIOTROPIUM [Concomitant]
     Active Substance: TIOTROPIUM
     Indication: CHRONIC OBSTRUCTIVE PULMONARY DISEASE
     Dosage: 18 ?G, QD
     Route: 055
     Dates: start: 20180524, end: 20190122
  17. OSELTAMIVIR [Concomitant]
     Active Substance: OSELTAMIVIR
     Indication: ANTIVIRAL PROPHYLAXIS
     Dosage: 75 MG, QD
     Route: 048
     Dates: start: 20190108, end: 20190120
  18. INFLIXIMAB [Concomitant]
     Active Substance: INFLIXIMAB
     Indication: COLITIS
     Dosage: 650 MG, STAT (SINGLE DOSES X2 (04-JAN-2019 AND 11-JAN-2019
     Route: 042
     Dates: start: 20190104, end: 20190111
  19. PREDNISOLONE. [Concomitant]
     Active Substance: PREDNISOLONE
     Indication: COLITIS
     Dosage: 10 MG, QD
     Route: 048
     Dates: start: 20181129, end: 20190122
  20. FORTISIP [Concomitant]
     Active Substance: CARBOHYDRATES\FATTY ACIDS\MINERALS\PROTEIN\VITAMINS
     Indication: NUTRITIONAL SUPPLEMENTATION
     Dosage: 125 ML, QD
     Route: 048
     Dates: start: 20190106, end: 20190122
  21. CLOPIDOGREL [Concomitant]
     Active Substance: CLOPIDOGREL BISULFATE
     Indication: MYOCARDIAL ISCHAEMIA
     Dosage: 75 MG, QD
     Route: 048
     Dates: start: 20090615, end: 20190122
  22. FENOFIBRATE. [Concomitant]
     Active Substance: FENOFIBRATE
     Indication: HYPERCHOLESTEROLAEMIA
     Dosage: 267 MG, UNK
     Route: 048
     Dates: start: 20090615, end: 20190122
  23. CINACALCET. [Concomitant]
     Active Substance: CINACALCET
     Indication: HYPERPARATHYROIDISM
     Dosage: 30 MG, QD
     Route: 048
     Dates: start: 20150615, end: 20190122
  24. METHYLPREDNISOLONE. [Concomitant]
     Active Substance: METHYLPREDNISOLONE
     Indication: COLITIS
     Dosage: 60 MG, QD
     Route: 042
     Dates: start: 20190103, end: 20190103
  25. COTRIMOXAZOLE [Concomitant]
     Active Substance: SULFAMETHOXAZOLE\TRIMETHOPRIM
     Indication: ANTIFUNGAL PROPHYLAXIS
     Dosage: 960 MG, QD
     Route: 048
     Dates: start: 20190103, end: 20190122
  26. PREDNISOLONE. [Concomitant]
     Active Substance: PREDNISOLONE
     Indication: PRODUCT USED FOR UNKNOWN INDICATION
     Dosage: 70 MG, QD
     Route: 048
     Dates: start: 20190211
  27. SALBUTAMOL [Concomitant]
     Active Substance: ALBUTEROL
     Indication: CHRONIC OBSTRUCTIVE PULMONARY DISEASE
     Dosage: 200 ?G, PRN
     Route: 055
     Dates: start: 20180227, end: 20190122

REACTIONS (1)
  - Influenza like illness [Not Recovered/Not Resolved]

NARRATIVE: CASE EVENT DATE: 20190214
